FAERS Safety Report 11984495 (Version 1)
Quarter: 2016Q1

REPORT INFORMATION
  Report Type: Spontaneous
  Country: FR (occurrence: FR)
  Receive Date: 20160201
  Receipt Date: 20160201
  Transmission Date: 20160526
  Serious: Yes (Hospitalization)
  Sender: FDA-Public Use
  Company Number: FR-JNJFOC-20160123637

PATIENT
  Age: 82 Year
  Sex: Male

DRUGS (15)
  1. GALVUS [Concomitant]
     Active Substance: VILDAGLIPTIN
     Route: 065
  2. LASILIX [Concomitant]
     Active Substance: FUROSEMIDE
     Route: 065
  3. CARDENSIEL [Concomitant]
     Active Substance: BISOPROLOL FUMARATE
     Route: 065
  4. ATORVASTATIN [Concomitant]
     Active Substance: ATORVASTATIN
     Route: 065
  5. OMEPRAZOLE. [Concomitant]
     Active Substance: OMEPRAZOLE
     Route: 065
  6. LEVEMIR [Concomitant]
     Active Substance: INSULIN DETEMIR
     Route: 065
  7. ATACAND [Concomitant]
     Active Substance: CANDESARTAN CILEXETIL
     Route: 065
  8. CARDENSIEL [Concomitant]
     Active Substance: BISOPROLOL FUMARATE
     Route: 065
  9. FEBUXOSTAT. [Concomitant]
     Active Substance: FEBUXOSTAT
     Route: 065
  10. XARELTO [Suspect]
     Active Substance: RIVAROXABAN
     Indication: CEREBROVASCULAR ACCIDENT PROPHYLAXIS
     Route: 048
     Dates: start: 201304, end: 20151209
  11. XARELTO [Suspect]
     Active Substance: RIVAROXABAN
     Indication: ATRIAL FIBRILLATION
     Route: 048
     Dates: start: 201304, end: 20151209
  12. DIAMICRON [Concomitant]
     Active Substance: GLICLAZIDE
     Route: 065
  13. METFORMINE [Concomitant]
     Active Substance: METFORMIN HYDROCHLORIDE
     Route: 065
  14. IKOREL [Concomitant]
     Active Substance: NICORANDIL
     Route: 065
  15. GLUCOPHAGE [Concomitant]
     Active Substance: METFORMIN HYDROCHLORIDE
     Route: 065

REACTIONS (1)
  - Ischaemic stroke [Recovered/Resolved]

NARRATIVE: CASE EVENT DATE: 20151209
